FAERS Safety Report 16350592 (Version 4)
Quarter: 2019Q3

REPORT INFORMATION
  Report Type: Spontaneous
  Country: JP (occurrence: JP)
  Receive Date: 20190524
  Receipt Date: 20190704
  Transmission Date: 20191004
  Serious: Yes (Hospitalization)
  Sender: FDA-Public Use
  Company Number: JP-AMGEN-JPNSP2019080110

PATIENT
  Age: 74 Year
  Sex: Female
  Weight: 47.1 kg

DRUGS (7)
  1. OXAROL MARUHO [Concomitant]
     Dosage: 2.5 MICROGRAM, 3 TIMES/WK (2.5 UG, Q56H (UNTIL 2018/06/08)
     Route: 042
     Dates: end: 20180608
  2. NESP [Concomitant]
     Active Substance: DARBEPOETIN ALFA
     Dosage: 40 MICROGRAM, AS NECESSARY (40 UG, PRN)
     Route: 051
  3. FOSRENOL [Concomitant]
     Active Substance: LANTHANUM CARBONATE
     Dosage: 750 MILLIGRAM, QD
     Route: 065
     Dates: start: 20180607
  4. PARSABIV [Suspect]
     Active Substance: ETELCALCETIDE HYDROCHLORIDE
     Indication: HYPERPARATHYROIDISM SECONDARY
     Dosage: 5 MILLIGRAM, QWK
     Route: 010
     Dates: start: 20181006
  5. OXAROL MARUHO [Concomitant]
     Dosage: 5 MICROGRAM, 3 TIMES/WK (5 UG, Q56H (UNTIL 2018/09/03))
     Route: 042
     Dates: start: 20180609
  6. OXAROL MARUHO [Concomitant]
     Dosage: 10 MICROGRAM, 3 TIMES/WK (10 UG, Q56H)
     Route: 042
     Dates: start: 20180904
  7. FESIN [SACCHARATED IRON OXIDE] [Concomitant]
     Dosage: 40 MILLIGRAM, AS NECESSARY (40 MG, PRN)
     Route: 065

REACTIONS (1)
  - Gastroenteritis [Recovered/Resolved]

NARRATIVE: CASE EVENT DATE: 20181124
